FAERS Safety Report 6917131-4 (Version None)
Quarter: 2010Q3

REPORT INFORMATION
  Report Type: 
  Country: None (occurrence: None)
  Receive Date: 20100810
  Receipt Date: 20090130
  Transmission Date: 20110219
  Serious: No
  Sender: FDA-Public Use
  Company Number: US-PFIZER INC-2009162861

PATIENT
  Age: 50 Year
  Sex: Female
  Weight: 58.957 kg

DRUGS (1)
  1. DILANTIN-125 [Suspect]
     Dosage: 100 MG, 2X/DAY
     Route: 048

REACTIONS (1)
  - DRUG TOXICITY [None]
